FAERS Safety Report 15764835 (Version 3)
Quarter: 2019Q1

REPORT INFORMATION
  Report Type: Report from Study
  Country: CO (occurrence: CO)
  Receive Date: 20181227
  Receipt Date: 20190126
  Transmission Date: 20190417
  Serious: Yes (Hospitalization)
  Sender: FDA-Public Use
  Company Number: PHHY2018CO139863

PATIENT
  Age: 14 Year
  Sex: Male
  Weight: 50 kg

DRUGS (2)
  1. JADENU [Suspect]
     Active Substance: DEFERASIROX
     Indication: APLASTIC ANAEMIA
     Dosage: 180 MG, QD
     Route: 048
     Dates: start: 201809
  2. JADENU [Suspect]
     Active Substance: DEFERASIROX
     Dosage: 900 MG, QD
     Route: 048
     Dates: start: 20180917

REACTIONS (4)
  - Platelet count decreased [Unknown]
  - Laboratory test abnormal [Unknown]
  - Skin discolouration [Unknown]
  - Fluid intake reduced [Unknown]

NARRATIVE: CASE EVENT DATE: 20181013
